FAERS Safety Report 15801486 (Version 1)
Quarter: 2019Q1

REPORT INFORMATION
  Report Type: Spontaneous
  Country: US (occurrence: US)
  Receive Date: 20190104
  Receipt Date: 20190104
  Transmission Date: 20190417
  Serious: No
  Sender: FDA-Public Use
  Company Number: None

PATIENT

DRUGS (2)
  1. CLONAZEPAM CLONAZEPAM [Suspect]
     Active Substance: CLONAZEPAM
  2. CLONAZEPAM  ODT [Suspect]
     Active Substance: CLONAZEPAM

REACTIONS (3)
  - Transcription medication error [None]
  - Incorrect product dosage form administered [None]
  - Product dispensing error [None]
